FAERS Safety Report 9896309 (Version 2)
Quarter: 2014Q1

REPORT INFORMATION
  Report Type: Spontaneous
  Country: US (occurrence: US)
  Receive Date: 20140213
  Receipt Date: 20140213
  Transmission Date: 20141002
  Serious: Yes (Hospitalization)
  Sender: FDA-Public Use
  Company Number: US-BRISTOL-MYERS SQUIBB COMPANY-18828491

PATIENT
  Age: 66 Year
  Sex: Female

DRUGS (3)
  1. ORENCIA FOR INJ [Suspect]
     Indication: RHEUMATOID ARTHRITIS
     Route: 042
     Dates: start: 201004, end: 201207
  2. VIVELLE [Suspect]
  3. TOPAMAX [Concomitant]

REACTIONS (1)
  - Colon cancer [Recovering/Resolving]
